FAERS Safety Report 5572316-7 (Version None)
Quarter: 2007Q4

REPORT INFORMATION
  Report Type: 
  Country: None (occurrence: None)
  Receive Date: 20071219
  Receipt Date: 20071207
  Transmission Date: 20080405
  Serious: Yes (Other)
  Sender: FDA-Public Use
  Company Number: 100#03#2007-05176

PATIENT
  Age: 56 Year
  Sex: Female

DRUGS (3)
  1. CITALOPRAM HYDROBROMIDE [Suspect]
     Indication: DRUG USE FOR UNKNOWN INDICATION
     Dosage: 20 MG
  2. GABAPENTIN [Suspect]
     Indication: NEURALGIA
  3. LYRICA [Suspect]
     Indication: NEURALGIA
     Dosage: 375 MG (150MG IN THE MORNING AND 225MG IN THE EVENING)

REACTIONS (9)
  - AMNESIA [None]
  - ANORGASMIA [None]
  - COGNITIVE DISORDER [None]
  - CONSTIPATION [None]
  - DISTURBANCE IN ATTENTION [None]
  - OEDEMA [None]
  - PAIN [None]
  - POLLAKIURIA [None]
  - WEIGHT INCREASED [None]
